FAERS Safety Report 7796680-3 (Version None)
Quarter: 2011Q3

REPORT INFORMATION
  Report Type: 
  Country: None (occurrence: None)
  Receive Date: 20110930
  Receipt Date: 20110919
  Transmission Date: 20111222
  Serious: Yes (Hospitalization)
  Sender: FDA-Public Use
  Company Number: 11-001038

PATIENT
  Age: 52 Year
  Sex: Female
  Weight: 64.9 kg

DRUGS (5)
  1. CLONAZEPAM [Concomitant]
  2. SYNTHROID [Concomitant]
  3. TRAMADOL HCL [Concomitant]
  4. ESTRACE [Suspect]
     Indication: MENOPAUSAL SYMPTOMS
     Dosage: 2 G, 3 TIMES A WEEK, VAGINAL
     Route: 067
     Dates: start: 20110916, end: 20110918
  5. CYMBALTA [Concomitant]

REACTIONS (7)
  - CHEST PAIN [None]
  - CHILLS [None]
  - DYSPNOEA [None]
  - FEELING HOT [None]
  - FATIGUE [None]
  - FLUSHING [None]
  - DIZZINESS [None]
